FAERS Safety Report 14294178 (Version 2)
Quarter: 2017Q4

REPORT INFORMATION
  Report Type: Report from Study
  Country: None (occurrence: ES)
  Receive Date: 20171217
  Receipt Date: 20171220
  Transmission Date: 20180321
  Serious: Yes (Other)
  Sender: FDA-Public Use
  Company Number: ES-ABBVIE-17K-144-2195380-00

PATIENT
  Age: 77 Year
  Sex: Male
  Weight: 54 kg

DRUGS (10)
  1. MIDAZOLAM [Suspect]
     Active Substance: MIDAZOLAM HYDROCHLORIDE
     Indication: GASTROSTOMY
  2. PROPOFOL. [Suspect]
     Active Substance: PROPOFOL
     Indication: SEDATIVE THERAPY
     Dosage: ONLY ONE DOSE
     Route: 042
     Dates: start: 20171214, end: 20171214
  3. FENTANILO [Suspect]
     Active Substance: FENTANYL
     Indication: GASTROSTOMY
  4. ROTIGOTINE [Suspect]
     Active Substance: ROTIGOTINE
     Route: 062
     Dates: start: 20171217
  5. DUODOPA [Suspect]
     Active Substance: CARBIDOPA\LEVODOPA
     Indication: PARKINSON^S DISEASE
     Route: 050
     Dates: start: 20171214
  6. FENTANILO [Suspect]
     Active Substance: FENTANYL
     Indication: SEDATIVE THERAPY
     Dosage: ONLY ONE DOSE
     Route: 042
     Dates: start: 20171214, end: 20171214
  7. MIDAZOLAM [Suspect]
     Active Substance: MIDAZOLAM HYDROCHLORIDE
     Indication: SEDATIVE THERAPY
     Dosage: ONLY ONE DOSE
     Route: 042
     Dates: start: 20171214, end: 20171214
  8. PROPOFOL. [Suspect]
     Active Substance: PROPOFOL
     Indication: GASTROSTOMY
  9. RIVOTRIL [Suspect]
     Active Substance: CLONAZEPAM
     Indication: PRODUCT USED FOR UNKNOWN INDICATION
     Dosage: ONLY ONE DOSE AT NIGHT
     Route: 048
     Dates: start: 20171214, end: 20171214
  10. ROTIGOTINE [Suspect]
     Active Substance: ROTIGOTINE
     Indication: PARKINSON^S DISEASE
     Route: 062
     Dates: end: 20171215

REACTIONS (6)
  - Psychomotor hyperactivity [Recovered/Resolved]
  - Disorientation [Recovered/Resolved]
  - Confusional state [Recovered/Resolved]
  - On and off phenomenon [Recovered/Resolved]
  - Hallucination [Recovered/Resolved]
  - Somnolence [Recovered/Resolved]

NARRATIVE: CASE EVENT DATE: 201712
